FAERS Safety Report 8190015-2 (Version None)
Quarter: 2012Q1

REPORT INFORMATION
  Report Type: 
  Country: None (occurrence: None)
  Receive Date: 20120307
  Receipt Date: 20120228
  Transmission Date: 20120608
  Serious: Yes (Other)
  Sender: FDA-Public Use
  Company Number: JP-ROXANE LABORATORIES, INC.-2012-RO-00748RO

PATIENT
  Age: 65 Year
  Sex: Male

DRUGS (1)
  1. PREDNISONE TAB [Suspect]
     Indication: IGA NEPHROPATHY
     Dosage: 30 MG

REACTIONS (3)
  - CHORIORETINOPATHY [None]
  - CATARACT [None]
  - RETINAL DEPIGMENTATION [None]
